FAERS Safety Report 11376419 (Version 3)
Quarter: 2018Q4

REPORT INFORMATION
  Report Type: Spontaneous
  Country: US (occurrence: US)
  Receive Date: 20150813
  Receipt Date: 20181220
  Transmission Date: 20190204
  Serious: Yes (Other)
  Sender: FDA-Public Use
  Company Number: US-TEVA-586367ACC

PATIENT
  Age: 29 Year
  Sex: Female

DRUGS (1)
  1. PARAGARD T 380A [Suspect]
     Active Substance: COPPER
     Indication: CONTRACEPTION
     Route: 015
     Dates: start: 201211

REACTIONS (15)
  - Anger [Unknown]
  - Malaise [Unknown]
  - Impaired work ability [Unknown]
  - Eosinophilic fasciitis [Unknown]
  - Asthenia [Unknown]
  - Depressed mood [Unknown]
  - Pregnancy on contraceptive [Unknown]
  - Bone pain [Unknown]
  - Arthralgia [Unknown]
  - Contusion [Unknown]
  - Gait disturbance [Unknown]
  - Depression [Unknown]
  - Pain [Unknown]
  - Maternal exposure during pregnancy [Unknown]
  - Skin swelling [Unknown]
